FAERS Safety Report 21541189 (Version 1)
Quarter: 2022Q4

REPORT INFORMATION
  Report Type: Spontaneous
  Country: US (occurrence: US)
  Receive Date: 20221102
  Receipt Date: 20221102
  Transmission Date: 20230112
  Serious: Yes (Hospitalization)
  Sender: FDA-Public Use
  Company Number: US-VERTEX PHARMACEUTICALS-2017-000538

PATIENT
  Age: 8 Year
  Sex: Male
  Weight: 31 kg

DRUGS (15)
  1. ORKAMBI [Suspect]
     Active Substance: IVACAFTOR\LUMACAFTOR
     Indication: Cystic fibrosis
     Dosage: 02 TABLETS (100/125MG EACH), BID
     Route: 048
     Dates: start: 20161230, end: 2020
  2. PROAIR HFA [Concomitant]
     Active Substance: ALBUTEROL SULFATE
     Indication: Wheezing
     Dosage: INHALE 2 PUFFS INTO LUNGS, EVERY 4 HRS, PRN
     Route: 055
     Dates: start: 20161207
  3. PROAIR HFA [Concomitant]
     Active Substance: ALBUTEROL SULFATE
     Indication: Dyspnoea
  4. PROVENTIL [Concomitant]
     Active Substance: ALBUTEROL
     Indication: Cough
     Dosage: 1 VIAL EVERY 4-6HRS WITH CLEARANCE PRN
     Route: 055
     Dates: start: 20161018
  5. PROVENTIL [Concomitant]
     Active Substance: ALBUTEROL
     Indication: Wheezing
  6. CYPROHEPTADINE [Concomitant]
     Active Substance: CYPROHEPTADINE
     Dosage: 1 TEASPOONFUL AT BEDTIME, SYRUP
     Route: 048
     Dates: start: 20161018
  7. PULMOZYME [Concomitant]
     Active Substance: DORNASE ALFA
     Dosage: 2.5 MG, QD. INCREASE TO 1-2 TIMES DAILY, WHEN SICK
     Route: 055
     Dates: start: 20161118
  8. EMLA [Concomitant]
     Active Substance: LIDOCAINE\PRILOCAINE
     Dosage: APPLY TO TWO DIFFERENT SITES ON ARM 60MIN PRIOR TO LAB DRAW
     Dates: start: 20160927
  9. NASONEX [Concomitant]
     Active Substance: MOMETASONE FUROATE
     Dosage: 2 SPRAYS IN EACH NOSTRIL, BID
     Dates: start: 20161118
  10. CREON [Concomitant]
     Active Substance: PANCRELIPASE AMYLASE\PANCRELIPASE LIPASE\PANCRELIPASE PROTEASE
     Dosage: UNK
     Route: 048
  11. PANCRELIPASE [Concomitant]
     Active Substance: PANCRELIPASE
     Dosage: 2 CAPSULES (24000 UNIT) WITH SNACKS AND MEALS. MAX=12 PER DAY
     Dates: start: 20170103
  12. VITAMAX [Concomitant]
     Dosage: 1 TABLET (60MG), QD
     Route: 048
     Dates: start: 20151229
  13. MIRALAX [Concomitant]
     Active Substance: POLYETHYLENE GLYCOL 3350
     Dosage: 17GM POWDER IN 4-8 OUNCES OF WATER/JUICE-STIR-DRINK, QD OR BID IF NEEDED
     Route: 048
     Dates: start: 20161228
  14. PREVACID [Concomitant]
     Active Substance: LANSOPRAZOLE
     Dosage: DISSOLVE 1 TABLET (15MG) ON THE TONGUE, BID DAILY BEFORE MEALS
     Route: 048
     Dates: start: 20161228
  15. SODIUM CHLORIDE [Concomitant]
     Active Substance: SODIUM CHLORIDE
     Dosage: 7% 1 VIAL PER NEBULIZER BID WITH AIRWAY CLEARANCE-MAY INCREASE TO TID WHEN INCREASED
     Route: 055
     Dates: start: 20161024

REACTIONS (1)
  - Infective pulmonary exacerbation of cystic fibrosis [Recovered/Resolved]

NARRATIVE: CASE EVENT DATE: 20170101
